FAERS Safety Report 7817169-9 (Version None)
Quarter: 2011Q4

REPORT INFORMATION
  Report Type: 
  Country: None (occurrence: None)
  Receive Date: 20111017
  Receipt Date: 20111017
  Transmission Date: 20120403
  Serious: No
  Sender: FDA-Public Use
  Company Number: None

PATIENT
  Age: 24 Year
  Sex: Male
  Weight: 58.967 kg

DRUGS (1)
  1. POLYETHYLENE GLYCOL [Suspect]
     Indication: CONSTIPATION
     Dosage: 17G SACHET
     Route: 048
     Dates: start: 20110825, end: 20110826

REACTIONS (27)
  - HEART RATE INCREASED [None]
  - HYPERHIDROSIS [None]
  - HEADACHE [None]
  - DISTURBANCE IN ATTENTION [None]
  - BIPOLAR DISORDER [None]
  - ASTHENIA [None]
  - FEAR [None]
  - OBSESSIVE-COMPULSIVE DISORDER [None]
  - DYSPEPSIA [None]
  - THIRST [None]
  - GASTROINTESTINAL INFLAMMATION [None]
  - DIZZINESS [None]
  - NAUSEA [None]
  - DEPRESSION [None]
  - SENSORY DISTURBANCE [None]
  - DELUSION [None]
  - DYSPNOEA [None]
  - SWELLING [None]
  - ANXIETY [None]
  - MOTOR DYSFUNCTION [None]
  - DECREASED APPETITE [None]
  - PARANOIA [None]
  - PSYCHOTIC DISORDER [None]
  - POLLAKIURIA [None]
  - FEELING COLD [None]
  - THINKING ABNORMAL [None]
  - LETHARGY [None]
